FAERS Safety Report 17376441 (Version 24)
Quarter: 2023Q2

REPORT INFORMATION
  Report Type: Other
  Country: DE (occurrence: None)
  Receive Date: 20200206
  Receipt Date: 20230616
  Transmission Date: 20230722
  Serious: Yes (Other)
  Sender: FDA-Public Use
  Company Number: DE-ROCHE-2215494

PATIENT
  Age: 37 Year
  Sex: Female

DRUGS (25)
  1. OCREVUS [Suspect]
     Active Substance: OCRELIZUMAB
     Indication: Secondary progressive multiple sclerosis
     Dosage: LAST GIVEN OCRELIZUMAB INFUSION WAS APPLIED IN /MAR/2020.?600 MG ONCE IN 171 DAYS, 600MG IN 186 DAYS
     Route: 042
     Dates: start: 20181112
  2. OCREVUS [Suspect]
     Active Substance: OCRELIZUMAB
     Route: 042
     Dates: start: 20181126
  3. OCREVUS [Suspect]
     Active Substance: OCRELIZUMAB
     Route: 042
     Dates: start: 20190523
  4. OCREVUS [Suspect]
     Active Substance: OCRELIZUMAB
     Route: 042
     Dates: start: 202003
  5. OCREVUS [Suspect]
     Active Substance: OCRELIZUMAB
     Route: 042
     Dates: start: 20201007
  6. OCREVUS [Suspect]
     Active Substance: OCRELIZUMAB
     Route: 042
  7. GABAPENTIN [Concomitant]
     Active Substance: GABAPENTIN
     Dosage: 1-1-1-1
  8. CITALOPRAM [Concomitant]
     Active Substance: CITALOPRAM HYDROBROMIDE
     Dosage: 1-0-0
  9. HYDROMORPHONE [Concomitant]
     Active Substance: HYDROMORPHONE
     Dosage: 1-0-0
     Route: 048
  10. HYDROMORPHONE [Concomitant]
     Active Substance: HYDROMORPHONE
     Route: 048
  11. HYDROMORPHONE [Concomitant]
     Active Substance: HYDROMORPHONE
     Dosage: 1-0-0
     Route: 048
  12. HYDROMORPHONE [Concomitant]
     Active Substance: HYDROMORPHONE
     Dosage: 32MG - 16MG - 32MG - 16MG
     Route: 048
  13. PANTOPRAZOLE [Concomitant]
     Active Substance: PANTOPRAZOLE
     Dosage: 1-0-1
  14. TRIMIPRAMINE [Concomitant]
     Active Substance: TRIMIPRAMINE
     Dosage: 0-0-1
  15. ZOPICLONE [Concomitant]
     Active Substance: ZOPICLONE
     Dosage: 0-0-2 AT NIGHT
  16. ZOPICLONE [Concomitant]
     Active Substance: ZOPICLONE
  17. SIMVASTATIN [Concomitant]
     Active Substance: SIMVASTATIN
     Dosage: 0-0-1
  18. LEVOTHYROXINE SODIUM [Concomitant]
     Active Substance: LEVOTHYROXINE SODIUM
  19. IBUPROFEN [Concomitant]
     Active Substance: IBUPROFEN
  20. HUMALOG [Concomitant]
     Active Substance: INSULIN LISPRO
     Dosage: BY VALUE AT MEALTIME
  21. LANTUS [Concomitant]
     Active Substance: INSULIN GLARGINE
     Dosage: 36 IU - 0 - 42 IU
  22. DOMINAL (GERMANY) [Concomitant]
  23. NOVALGIN (METAMIZOLE SODIUM) [Concomitant]
     Active Substance: METAMIZOLE SODIUM
  24. NABIXIMOLS [Concomitant]
     Active Substance: NABIXIMOLS
  25. NITROFURANTOIN [Concomitant]
     Active Substance: NITROFURANTOIN

REACTIONS (28)
  - Pneumonia [Recovered/Resolved]
  - Renal disorder [Not Recovered/Not Resolved]
  - Pelvic inflammatory disease [Not Recovered/Not Resolved]
  - Upper limb fracture [Recovered/Resolved]
  - Foot fracture [Recovered/Resolved]
  - Pyrexia [Recovered/Resolved]
  - Off label use [Unknown]
  - Fatigue [Recovered/Resolved]
  - Headache [Recovered/Resolved]
  - Blood glucose increased [Recovered/Resolved]
  - Back pain [Not Recovered/Not Resolved]
  - Abdominal pain upper [Not Recovered/Not Resolved]
  - Abdominal discomfort [Not Recovered/Not Resolved]
  - Nasopharyngitis [Recovered/Resolved]
  - Fall [Unknown]
  - Haematoma [Recovered/Resolved]
  - Face injury [Not Recovered/Not Resolved]
  - Pain in extremity [Recovered/Resolved]
  - Inflammation [Recovered/Resolved]
  - Liver function test increased [Unknown]
  - Blister [Recovered/Resolved]
  - Pleurisy [Recovered/Resolved]
  - Urinary tract infection [Unknown]
  - Bladder disorder [Unknown]
  - Hand fracture [Recovered/Resolved]
  - Hypoglycaemia [Recovered/Resolved]
  - Rib fracture [Recovered/Resolved]
  - Decubitus ulcer [Not Recovered/Not Resolved]

NARRATIVE: CASE EVENT DATE: 20181112
